FAERS Safety Report 9117455 (Version 2)
Quarter: 2013Q2

REPORT INFORMATION
  Report Type: Spontaneous
  Country: US (occurrence: US)
  Receive Date: 20130225
  Receipt Date: 20130401
  Transmission Date: 20140414
  Serious: No
  Sender: FDA-Public Use
  Company Number: US-PFIZER INC-2013064300

PATIENT
  Age: 49 Year
  Sex: Female

DRUGS (11)
  1. ZOLOFT [Suspect]
     Dosage: UNK
  2. EFFEXOR XR [Suspect]
     Dosage: 150 MG, 2X/DAY
  3. PREMARIN [Suspect]
     Dosage: 0.625 MG, 2X/DAY
  4. BUPROPION SR [Concomitant]
     Dosage: 150 MG, 2X/DAY
  5. LABETALOL HCL [Concomitant]
     Dosage: 100 MG, 2X/DAY
  6. SIMVASTATIN [Concomitant]
     Dosage: 40 MG, 1X/DAY
  7. PLAVIX [Concomitant]
     Dosage: 75 MG, 1X/DAY
  8. ALPRAZOLAM XR [Concomitant]
     Indication: PANIC ATTACK
     Dosage: 1 MG, 1X/DAY
  9. B-12 [Concomitant]
     Dosage: 1000 UG, 1X/DAY
  10. CALCIUM CARBONATE W/VITAMIN D3 [Concomitant]
     Dosage: CALCIUM CARBONATE (600MG)/ COLECALCIFEROL (400IU)
  11. ALPRAZOLAM [Concomitant]
     Indication: PANIC ATTACK
     Dosage: 1 MG, 2X/DAY AT BEDTIME AND FOR PANIC ATTACK (NO MORE THAN 2 IN 24 HOURS)

REACTIONS (2)
  - Drug intolerance [Unknown]
  - Panic attack [Unknown]
